FAERS Safety Report 20068783 (Version 1)
Quarter: 2021Q4

REPORT INFORMATION
  Report Type: Spontaneous
  Country: US (occurrence: US)
  Receive Date: 20211115
  Receipt Date: 20211115
  Transmission Date: 20220303
  Serious: No
  Sender: FDA-Public Use
  Company Number: US-TEVA-2021-US-1974369

PATIENT
  Age: 28 Year
  Sex: Female

DRUGS (1)
  1. LOESTRIN NOS [Suspect]
     Active Substance: ETHINYL ESTRADIOL\NORETHINDRONE ACETATE
     Dosage: THREE WEEKS ON AND ONE WEEK OFF (1/20 21 DAY)
     Dates: start: 20211003

REACTIONS (1)
  - Blood luteinising hormone increased [Unknown]

NARRATIVE: CASE EVENT DATE: 20211030
